FAERS Safety Report 20945649 (Version 1)
Quarter: 2022Q2

REPORT INFORMATION
  Report Type: Spontaneous
  Country: US (occurrence: None)
  Receive Date: 20220609
  Receipt Date: 20220609
  Transmission Date: 20220721
  Serious: Yes (Other)
  Sender: FDA-Public Use
  Company Number: None

PATIENT
  Sex: Male

DRUGS (8)
  1. BOSULIF [Suspect]
     Active Substance: BOSUTINIB MONOHYDRATE
     Indication: Chronic myeloid leukaemia
     Dosage: FREQUENCY : AS DIRECTED;?
     Route: 048
     Dates: start: 20190627
  2. AMLODIPINE TAB [Concomitant]
  3. BOSULIF [Concomitant]
     Active Substance: BOSUTINIB MONOHYDRATE
  4. CARVEDILOL [Concomitant]
     Active Substance: CARVEDILOL
  5. GLIPIZIDE ER TAB [Concomitant]
  6. HYDROCHLOROT TAB [Concomitant]
  7. LOSARTAN POT TAB [Concomitant]
  8. METFORMIN TAB [Concomitant]

REACTIONS (2)
  - Eye haemorrhage [None]
  - Therapy interrupted [None]
